FAERS Safety Report 7942334-X (Version None)
Quarter: 2011Q4

REPORT INFORMATION
  Report Type: 
  Country: None (occurrence: None)
  Receive Date: 20111122
  Receipt Date: 20110719
  Transmission Date: 20120403
  Serious: No
  Sender: FDA-Public Use
  Company Number: PHHY2011US58747

PATIENT
  Age: 58 Year
  Sex: Male

DRUGS (2)
  1. ROPINIROLE [Concomitant]
  2. GILENYA [Suspect]
     Indication: MULTIPLE SCLEROSIS
     Dosage: 0.5 MG, EVERYDAY, ORAL
     Route: 048
     Dates: start: 20110606

REACTIONS (3)
  - BACK PAIN [None]
  - GAIT DISTURBANCE [None]
  - FATIGUE [None]
